FAERS Safety Report 21096171 (Version 9)
Quarter: 2023Q2

REPORT INFORMATION
  Report Type: Report from Study
  Country: US (occurrence: US)
  Receive Date: 20220718
  Receipt Date: 20230503
  Transmission Date: 20230722
  Serious: No
  Sender: FDA-Public Use
  Company Number: US-NOVARTISTESTPH-NVSC2022US162635

PATIENT
  Sex: Male

DRUGS (2)
  1. COSENTYX [Suspect]
     Active Substance: SECUKINUMAB
     Indication: Psoriatic arthropathy
     Dosage: UNK
     Route: 065
  2. COSENTYX [Suspect]
     Active Substance: SECUKINUMAB
     Dosage: UNK, QMO (STARTED IN JUNE)
     Route: 065

REACTIONS (5)
  - Illness [Unknown]
  - COVID-19 [Unknown]
  - Staphylococcal infection [Unknown]
  - Psoriasis [Recovering/Resolving]
  - Drug ineffective [Unknown]
